FAERS Safety Report 4746364-0 (Version None)
Quarter: 2005Q3

REPORT INFORMATION
  Report Type: 
  Country: None (occurrence: None)
  Receive Date: 20050815
  Receipt Date: 20050801
  Transmission Date: 20060218
  Serious: Yes (Death, Life-Threatening, Hospitalization, Other)
  Sender: FDA-Public Use
  Company Number: 2005077453

PATIENT
  Age: 66 Year
  Sex: Male

DRUGS (18)
  1. ATARAX [Suspect]
     Indication: ILL-DEFINED DISORDER
     Dosage: 1 DOSE FORM, ORAL
     Route: 048
     Dates: start: 20050310, end: 20050326
  2. PANTOPRAZOLE SODIUM [Suspect]
     Indication: ILL-DEFINED DISORDER
     Dosage: ORAL
     Route: 048
     Dates: start: 20050310, end: 20050326
  3. HEPARIN SODIUM [Suspect]
     Indication: ILL-DEFINED DISORDER
  4. AMOXICILLIN AND CLAVULANATE POTASSIUM [Suspect]
     Indication: RESPIRATORY DISORDER
     Dosage: ORAL
     Route: 048
     Dates: start: 20050308, end: 20050321
  5. IOPAMIDOL [Suspect]
     Indication: COMPUTERISED TOMOGRAM
     Dosage: ONE TIME DOSE (ON 23FEB2005 AND 22MAR2005), INTRAVENOUS
     Route: 042
     Dates: start: 20050223, end: 20050322
  6. OFLOXACIN [Suspect]
     Indication: ILL-DEFINED DISORDER
     Dosage: ORAL
     Route: 048
     Dates: start: 20050310, end: 20050321
  7. ALLOPURINOL [Concomitant]
  8. PRAVASTATIN [Concomitant]
  9. COVERSYL (PERINDOPRIL) [Concomitant]
  10. FORLAX (MACROGOL) [Concomitant]
  11. EDUCTYL (POTASSIUM BITARTRATE, SODIUM BICARBONATE) [Concomitant]
  12. DURAGESIC-100 [Concomitant]
  13. LOVENOX [Concomitant]
  14. CORTANCYL (PREDNISONE) [Concomitant]
  15. MORPHINE SULFATE [Concomitant]
  16. NUTRISON (CARBOHYDRATES NOS, LIPIDS NOS, PROTEINS NOS) [Concomitant]
  17. ACETAMINOPHEN [Concomitant]
  18. BARIUM SULFATE (BARIUM SULFATE [Concomitant]

REACTIONS (12)
  - ATRIAL FIBRILLATION [None]
  - CARDIAC ARREST [None]
  - CARDIAC FAILURE [None]
  - HAEMOGLOBIN DECREASED [None]
  - HEPARIN-INDUCED THROMBOCYTOPENIA [None]
  - LUNG DISORDER [None]
  - PLATELET COUNT INCREASED [None]
  - PLEURAL EFFUSION [None]
  - PULMONARY OEDEMA [None]
  - SEPTIC SHOCK [None]
  - TOXIC EPIDERMAL NECROLYSIS [None]
  - TOXIC SKIN ERUPTION [None]
